FAERS Safety Report 10231283 (Version 2)
Quarter: 2014Q2

REPORT INFORMATION
  Report Type: Spontaneous
  Country: NL (occurrence: NL)
  Receive Date: 20140611
  Receipt Date: 20140617
  Transmission Date: 20141212
  Serious: Yes (Life-Threatening, Hospitalization)
  Sender: FDA-Public Use
  Company Number: PHHY2014NL071366

PATIENT
  Sex: Male

DRUGS (7)
  1. CARBAMAZEPINE [Suspect]
     Indication: EPILEPSY
     Dosage: 2 DF (100 MG), TID
     Dates: end: 20140525
  2. PARACETAMOL [Concomitant]
     Dosage: 4 DF (1000 MG), QD
  3. PANTOPRAZOLE [Concomitant]
     Dosage: 1 TABLET, GASTRIC JUICE RESISTANT (40 MG), QD
  4. MOVICOLON [Concomitant]
     Dosage: 1 DF DAILY (POWDER FOR DRINK IN SACHET), WHEN NEEDED
  5. ACENOCOUMAROL [Concomitant]
     Dosage: 1 DF (1 MG), UNK
  6. DEPAKINE CHRONO [Concomitant]
     Dosage: 1 DF (500 MG), BID
  7. SODIUM CHLORIDE [Concomitant]
     Dosage: UNK, 1 OR 5DD1 DROP

REACTIONS (2)
  - Interstitial lung disease [Recovered/Resolved]
  - Liver disorder [Recovered/Resolved]
